FAERS Safety Report 10926310 (Version 1)
Quarter: 2015Q1

REPORT INFORMATION
  Report Type: Spontaneous
  Country: US (occurrence: None)
  Receive Date: 20150202
  Receipt Date: 20150202
  Transmission Date: 20150721
  Serious: Yes (Hospitalization)
  Sender: FDA-Public Use
  Company Number: TPA2012A04369

PATIENT
  Age: 73 Year
  Sex: Female

DRUGS (8)
  1. SYMBICORT (FORMOTEROL FUMARATE, BUDESONIDE) [Concomitant]
  2. KLOR-CON (POTASSIUM CHLORIDE) [Concomitant]
  3. BENICAR [Concomitant]
     Active Substance: OLMESARTAN MEDOXOMIL
  4. SPIRIVA (TIOTROPIUM BROMIDE) [Concomitant]
  5. BYETTA (EXENATIDE) [Concomitant]
  6. NORVASC [Concomitant]
     Active Substance: AMLODIPINE BESYLATE
  7. SINGULAIR (MONTELUKAST SODIUM) [Concomitant]
  8. DEXILANT [Suspect]
     Active Substance: DEXLANSOPRAZOLE
     Indication: GASTROOESOPHAGEAL REFLUX DISEASE
     Route: 048
     Dates: start: 20120629, end: 20120702

REACTIONS (6)
  - Nausea [None]
  - Wheezing [None]
  - Erythema [None]
  - Urticaria [None]
  - Fatigue [None]
  - Dyspnoea [None]

NARRATIVE: CASE EVENT DATE: 20120629
